FAERS Safety Report 9882690 (Version 3)
Quarter: 2014Q1

REPORT INFORMATION
  Report Type: Spontaneous
  Country: JP (occurrence: JP)
  Receive Date: 20140207
  Receipt Date: 20140307
  Transmission Date: 20141002
  Serious: Yes (Death, Hospitalization)
  Sender: FDA-Public Use
  Company Number: JP-ABBVIE-13P-087-1182763-00

PATIENT
  Age: 60 Year
  Sex: Female

DRUGS (4)
  1. HUMIRA [Suspect]
     Indication: RHEUMATOID ARTHRITIS
     Route: 058
     Dates: start: 20110322, end: 201311
  2. METHOTREXATE [Suspect]
     Indication: RHEUMATOID ARTHRITIS
     Dosage: 8 MG/WEEK
     Route: 048
     Dates: start: 20110615, end: 20131204
  3. TACROLIMUS [Suspect]
     Indication: RHEUMATOID ARTHRITIS
     Route: 048
     Dates: start: 20100407, end: 20131113
  4. TACROLIMUS [Suspect]
     Dates: start: 200706

REACTIONS (9)
  - Pancreatic neuroendocrine tumour [Fatal]
  - Hyperamylasaemia [Fatal]
  - Metastases to lymph nodes [Fatal]
  - Ascites [Fatal]
  - White blood cell count decreased [Fatal]
  - Oedema peripheral [Fatal]
  - Cholangitis [Fatal]
  - Anaemia [Fatal]
  - Hepatic enzyme increased [Unknown]
